FAERS Safety Report 5737048-0 (Version None)
Quarter: 2008Q2

REPORT INFORMATION
  Report Type: 
  Country: None (occurrence: None)
  Receive Date: 20080512
  Receipt Date: 20080512
  Transmission Date: 20081010
  Serious: Yes (Other)
  Sender: FDA-Public Use
  Company Number: None

PATIENT
  Age: 68 Year
  Sex: Female
  Weight: 56.6996 kg

DRUGS (1)
  1. DARVOCET-N 100 [Suspect]
     Indication: SPINAL COMPRESSION FRACTURE
     Dosage: ONCE Q6 PO
     Route: 048
     Dates: start: 20080404, end: 20080408

REACTIONS (2)
  - NAUSEA [None]
  - PRURITUS [None]
